FAERS Safety Report 8189805-1 (Version None)
Quarter: 2012Q1

REPORT INFORMATION
  Report Type: 
  Country: None (occurrence: None)
  Receive Date: 20120307
  Receipt Date: 20110606
  Transmission Date: 20120608
  Serious: No
  Sender: FDA-Public Use
  Company Number: US-GLAXOSMITHKLINE-A0931208A

PATIENT
  Age: 48 Year
  Sex: Female

DRUGS (1)
  1. REQUIP [Suspect]
     Route: 065

REACTIONS (2)
  - VOMITING [None]
  - DRUG INEFFECTIVE [None]
